FAERS Safety Report 5345028-2 (Version None)
Quarter: 2007Q2

REPORT INFORMATION
  Report Type: 
  Country: None (occurrence: None)
  Receive Date: 20070425
  Receipt Date: 20060310
  Transmission Date: 20071010
  Serious: Yes (Hospitalization)
  Sender: FDA-Public Use
  Company Number: 2006-BP-02813BP

PATIENT
  Sex: Male

DRUGS (1)
  1. FLOMAX [Suspect]
     Indication: URINARY RETENTION
     Dosage: 0.8 MG, (0.4 MG,HS),PO
     Route: 048

REACTIONS (1)
  - DIZZINESS [None]
